FAERS Safety Report 4960685-8 (Version None)
Quarter: 2006Q2

REPORT INFORMATION
  Report Type: 
  Country: None (occurrence: None)
  Receive Date: 20060403
  Receipt Date: 20051129
  Transmission Date: 20061013
  Serious: Yes (Death)
  Sender: FDA-Public Use
  Company Number: US-MERCK-0511USA04499

PATIENT
  Age: 60 Year
  Sex: Female
  Weight: 68 kg

DRUGS (15)
  1. VIOXX [Suspect]
     Indication: PROCEDURAL PAIN
     Route: 048
     Dates: start: 20020218, end: 20030831
  2. VIOXX [Suspect]
     Indication: ARTHRALGIA
     Route: 048
     Dates: start: 20020218, end: 20030831
  3. KLOR-CON [Concomitant]
     Indication: HYPERTENSION
     Route: 065
  4. ADALAT [Concomitant]
     Route: 065
  5. MAXZIDE [Concomitant]
     Route: 065
  6. PREMPRO [Concomitant]
     Route: 065
  7. FEMHRT [Concomitant]
     Route: 065
  8. PROVERA [Concomitant]
     Route: 065
  9. LEXAPRO [Concomitant]
     Indication: STRESS
     Route: 065
     Dates: start: 20030101, end: 20030901
  10. WARFARIN [Concomitant]
     Indication: ANTICOAGULANT THERAPY
     Route: 065
     Dates: start: 20021201, end: 20030201
  11. AMBIEN [Concomitant]
     Indication: SLEEP DISORDER
     Route: 065
  12. CYANOCOBALAMIN [Concomitant]
     Route: 065
  13. FLONASE [Concomitant]
     Route: 065
  14. AMOXICILLIN [Concomitant]
     Route: 065
  15. ALLEGRA [Concomitant]
     Route: 065

REACTIONS (2)
  - HYPERTENSION [None]
  - MYOCARDIAL INFARCTION [None]
